FAERS Safety Report 13631018 (Version 1)
Quarter: 2017Q2

REPORT INFORMATION
  Report Type: Spontaneous
  Country: US (occurrence: US)
  Receive Date: 20170531
  Receipt Date: 20170531
  Transmission Date: 20170830
  Serious: No
  Sender: FDA-Public Use
  Company Number: US-ASTELLAS-1345865

PATIENT
  Age: 80 Year
  Sex: Female

DRUGS (10)
  1. PANTOPRAZOLE [Concomitant]
     Active Substance: PANTOPRAZOLE
  2. GLIPIZIDE. [Concomitant]
     Active Substance: GLIPIZIDE
  3. SOTALOL. [Concomitant]
     Active Substance: SOTALOL
  4. KLOR-CON [Concomitant]
     Active Substance: POTASSIUM CHLORIDE
  5. FUROSEMIDE. [Concomitant]
     Active Substance: FUROSEMIDE
  6. VITAMIN B12 [Concomitant]
     Active Substance: CYANOCOBALAMIN
     Route: 065
     Dates: start: 20140109
  7. TARCEVA [Suspect]
     Active Substance: ERLOTINIB HYDROCHLORIDE
     Indication: LUNG NEOPLASM MALIGNANT
     Route: 048
     Dates: start: 20130622
  8. WARFARIN [Concomitant]
     Active Substance: WARFARIN
  9. GABAPENTIN. [Concomitant]
     Active Substance: GABAPENTIN
  10. ACTOS [Concomitant]
     Active Substance: PIOGLITAZONE HYDROCHLORIDE

REACTIONS (2)
  - Nausea [Recovering/Resolving]
  - Diarrhoea [Unknown]

NARRATIVE: CASE EVENT DATE: 20140110
